FAERS Safety Report 9290499 (Version 2)
Quarter: 2013Q2

REPORT INFORMATION
  Report Type: Spontaneous
  Country: US (occurrence: US)
  Receive Date: 20130515
  Receipt Date: 20130531
  Transmission Date: 20140414
  Serious: Yes (Hospitalization)
  Sender: FDA-Public Use
  Company Number: US-PFIZER INC-2013144924

PATIENT
  Age: 71 Year
  Sex: Female

DRUGS (1)
  1. INLYTA [Suspect]
     Indication: RENAL CANCER
     Dosage: 5 MG, 1X/DAY
     Dates: start: 20130320

REACTIONS (11)
  - Haemorrhage [Unknown]
  - Rash [Unknown]
  - Contusion [Unknown]
  - Diarrhoea [Unknown]
  - Headache [Unknown]
  - Pain [Unknown]
  - Alopecia [Unknown]
  - Disease progression [Unknown]
  - Renal cancer [Unknown]
  - Haemoptysis [Unknown]
  - International normalised ratio increased [Unknown]
